FAERS Safety Report 5116233-5 (Version None)
Quarter: 2006Q3

REPORT INFORMATION
  Report Type: 
  Country: None (occurrence: None)
  Receive Date: 20060927
  Receipt Date: 20060923
  Transmission Date: 20061208
  Serious: Yes (Congenital Anomaly)
  Sender: FDA-Public Use
  Company Number: US-GLAXOSMITHKLINE-A0621503A

PATIENT
  Sex: Male
  Weight: 2.5 kg

DRUGS (7)
  1. TRIZIVIR [Suspect]
     Indication: HIV INFECTION
     Dates: start: 20051202
  2. VIRAMUNE [Suspect]
     Dosage: 200MG PER DAY
     Dates: start: 20060404, end: 20060404
  3. ZIDOVUDINE [Suspect]
     Dosage: 716MG PER DAY
     Dates: start: 20060404, end: 20060405
  4. ALCOHOL [Concomitant]
  5. COCAINE [Concomitant]
  6. MARIJUANA [Concomitant]
  7. METHAMPHETAMINE HYDROCHLORIDE [Concomitant]

REACTIONS (3)
  - ATRIAL SEPTAL DEFECT [None]
  - DRUG EXPOSURE DURING PREGNANCY [None]
  - PULMONARY VALVE STENOSIS [None]
